FAERS Safety Report 9311594 (Version 1)
Quarter: 2013Q2

REPORT INFORMATION
  Report Type: Spontaneous
  Country: US (occurrence: US)
  Receive Date: 20130528
  Receipt Date: 20130528
  Transmission Date: 20140414
  Serious: Yes (Other)
  Sender: FDA-Public Use
  Company Number: US-BAYER-2013-063806

PATIENT
  Age: 66 Year
  Sex: Male
  Weight: 113.38 kg

DRUGS (1)
  1. ALEVE CAPLET [Suspect]
     Indication: BACK PAIN
     Dosage: UNK UNK, QD
     Route: 048
     Dates: start: 20130301

REACTIONS (2)
  - Blood pressure systolic increased [Not Recovered/Not Resolved]
  - Incorrect drug administration duration [None]
